FAERS Safety Report 4675464-9 (Version None)
Quarter: 2005Q2

REPORT INFORMATION
  Report Type: 
  Country: None (occurrence: None)
  Receive Date: 20050527
  Receipt Date: 20050315
  Transmission Date: 20051028
  Serious: No
  Sender: FDA-Public Use
  Company Number: US-BRISTOL-MYERS SQUIBB COMPANY-12898763

PATIENT
  Age: 35 Year
  Sex: Female
  Weight: 51 kg

DRUGS (3)
  1. ABILIFY [Suspect]
     Indication: BIPOLAR DISORDER
     Route: 048
     Dates: start: 20050301
  2. TOPAMAX [Concomitant]
     Indication: MOOD SWINGS
     Dosage: DURATION OF THERAPY:  YEARS
  3. SYNTHROID [Concomitant]
     Indication: HYPOTHYROIDISM
     Dosage: DURATION OF THERAPY:  YEARS

REACTIONS (1)
  - ALOPECIA [None]
